FAERS Safety Report 5775961-9 (Version None)
Quarter: 2008Q2

REPORT INFORMATION
  Report Type: 
  Country: None (occurrence: None)
  Receive Date: 20080601
  Receipt Date: 20080201
  Transmission Date: 20081010
  Serious: No
  Sender: FDA-Public Use
  Company Number: 2007PV029835

PATIENT
  Age: 70 Year
  Sex: Male
  Weight: 96.2 kg

DRUGS (13)
  1. EXENATIDE(EXENATIDE) PEN, DISPOSABLE [Suspect]
     Indication: TYPE 2 DIABETES MELLITUS
     Dosage: 5 UG, 2/D, SUBCUTANEOUS; 10 UG, 2/D, SUBCUTANEOUS; 5 UG, 2/D, SUBCUTANEOUS
     Route: 058
     Dates: start: 20070108, end: 20070208
  2. EXENATIDE(EXENATIDE) PEN, DISPOSABLE [Suspect]
     Indication: TYPE 2 DIABETES MELLITUS
     Dosage: 5 UG, 2/D, SUBCUTANEOUS; 10 UG, 2/D, SUBCUTANEOUS; 5 UG, 2/D, SUBCUTANEOUS
     Route: 058
     Dates: start: 20070209, end: 20070311
  3. EXENATIDE(EXENATIDE) PEN, DISPOSABLE [Suspect]
     Indication: TYPE 2 DIABETES MELLITUS
     Dosage: 5 UG, 2/D, SUBCUTANEOUS; 10 UG, 2/D, SUBCUTANEOUS; 5 UG, 2/D, SUBCUTANEOUS
     Route: 058
     Dates: start: 20070327, end: 20070423
  4. LANTUS [Concomitant]
  5. GLYBURIDE [Concomitant]
  6. ASPIRIN [Concomitant]
  7. PYRIDIUM (PHENAZOPYRIDINE HYDROCHLORIDE) [Concomitant]
  8. IBUPROFEN [Concomitant]
  9. ROSIGLITAZONE MALEATE [Concomitant]
  10. GLIMEPIRIDE [Concomitant]
  11. CLINDAMYCIN HCL [Concomitant]
  12. EYE DROPS (TETRYZOLINE HYDROCHLORIDE) [Concomitant]
  13. PREVACID [Concomitant]

REACTIONS (6)
  - BLOOD GLUCOSE INCREASED [None]
  - CATARACT [None]
  - DECREASED APPETITE [None]
  - DIZZINESS [None]
  - INJECTION SITE PAIN [None]
  - WEIGHT DECREASED [None]
